FAERS Safety Report 4305534-6 (Version None)
Quarter: 2004Q1

REPORT INFORMATION
  Report Type: 
  Country: None (occurrence: None)
  Receive Date: 20040226
  Receipt Date: 20031117
  Transmission Date: 20041129
  Serious: No
  Sender: FDA-Public Use
  Company Number: US-BRISTOL-MYERS SQUIBB COMPANY-12437653

PATIENT
  Age: 10 Year
  Sex: Male
  Weight: 38 kg

DRUGS (2)
  1. ABILIFY [Suspect]
     Indication: ASPERGER'S DISORDER
     Dosage: DOSE REDUCED TO 7.5 MG/DAY.
     Route: 048
     Dates: start: 20031001
  2. TOPAMAX [Concomitant]

REACTIONS (1)
  - VOMITING [None]
